FAERS Safety Report 11249305 (Version 2)
Quarter: 2015Q3

REPORT INFORMATION
  Report Type: Spontaneous
  Country: US (occurrence: US)
  Receive Date: 20150708
  Receipt Date: 20150708
  Transmission Date: 20151125
  Serious: Yes (Death, Hospitalization)
  Sender: FDA-Public Use
  Company Number: US-ELI_LILLY_AND_COMPANY-US200912003509

PATIENT
  Age: 64 Year
  Sex: Male
  Weight: 97.51 kg

DRUGS (7)
  1. VITAMIN B12 [Concomitant]
     Active Substance: CYANOCOBALAMIN
  2. GEMZAR [Suspect]
     Active Substance: GEMCITABINE HYDROCHLORIDE
     Indication: LUNG CANCER METASTATIC
     Dosage: 3300 MG, UNK
     Dates: start: 20090406, end: 20090615
  3. ZOMETA [Concomitant]
     Active Substance: ZOLEDRONIC ACID
     Dosage: 4 MG, UNK
     Dates: start: 20090504, end: 20090601
  4. ALIMTA [Suspect]
     Active Substance: PEMETREXED DISODIUM
     Indication: LUNG CANCER METASTATIC
     Dosage: 1100 MG, UNK
     Dates: start: 20090406, end: 20090615
  5. FOLIC ACID. [Concomitant]
     Active Substance: FOLIC ACID
  6. DEXAMETHASONE. [Concomitant]
     Active Substance: DEXAMETHASONE
  7. AVASTIN [Concomitant]
     Active Substance: BEVACIZUMAB
     Indication: LUNG CANCER METASTATIC
     Dosage: 1000 MG, UNK
     Dates: start: 20090406, end: 20090615

REACTIONS (2)
  - Malignant neoplasm progression [Fatal]
  - Acute kidney injury [Unknown]

NARRATIVE: CASE EVENT DATE: 2009
